FAERS Safety Report 5737682-8 (Version None)
Quarter: 2008Q2

REPORT INFORMATION
  Report Type: 
  Country: None (occurrence: None)
  Receive Date: 20080514
  Receipt Date: 20080509
  Transmission Date: 20081010
  Serious: Yes (Other)
  Sender: FDA-Public Use
  Company Number: JP-BAYER-200810736BYL

PATIENT

DRUGS (1)
  1. ASPIRIN [Suspect]
     Indication: ARTERIAL THROMBOSIS
     Route: 048

REACTIONS (1)
  - GASTRIC ULCER HAEMORRHAGE [None]
